FAERS Safety Report 17946703 (Version 3)
Quarter: 2025Q2

REPORT INFORMATION
  Report Type: Spontaneous
  Country: JP (occurrence: JP)
  Receive Date: 20200626
  Receipt Date: 20250520
  Transmission Date: 20250716
  Serious: Yes (Death, Other)
  Sender: AUROBINDO
  Company Number: JP-AUROBINDO-AUR-APL-2020-030733

PATIENT
  Age: 72 Year
  Sex: Male

DRUGS (4)
  1. FOLOTYN [Suspect]
     Active Substance: PRALATREXATE
     Indication: Intestinal T-cell lymphoma recurrent
     Route: 042
  2. FOLOTYN [Suspect]
     Active Substance: PRALATREXATE
     Route: 042
     Dates: start: 201811
  3. FOLOTYN [Suspect]
     Active Substance: PRALATREXATE
     Route: 042
     Dates: end: 20190423
  4. LEUCOVORIN [Concomitant]
     Active Substance: LEUCOVORIN\LEUCOVORIN CALCIUM
     Indication: Product used for unknown indication
     Route: 065

REACTIONS (3)
  - Malignant neoplasm progression [Fatal]
  - Febrile neutropenia [Unknown]
  - Oral disorder [Unknown]
